FAERS Safety Report 24151356 (Version 1)
Quarter: 2024Q3

REPORT INFORMATION
  Report Type: Spontaneous
  Country: ES (occurrence: ES)
  Receive Date: 20240730
  Receipt Date: 20240730
  Transmission Date: 20241017
  Serious: Yes (Other)
  Sender: RANBAXY
  Company Number: ES-ASTELLAS-2024US002039

PATIENT
  Sex: Male

DRUGS (3)
  1. TAMSULOSIN [Suspect]
     Active Substance: TAMSULOSIN
     Indication: Blood testosterone increased
     Dosage: UNK
     Route: 065
  2. TAMSULOSIN [Suspect]
     Active Substance: TAMSULOSIN
     Dosage: UNK
     Route: 065
  3. RISPERIDONE [Concomitant]
     Active Substance: RISPERIDONE
     Indication: Dopaminergic drug therapy
     Dosage: UNK UNK, UNKNOWN FREQ.
     Route: 065

REACTIONS (14)
  - Urinary tract infection [Unknown]
  - Dehydration [Unknown]
  - Weight decreased [Unknown]
  - Somnolence [Unknown]
  - Arthropathy [Unknown]
  - Off label use [Unknown]
  - Renal disorder [Unknown]
  - Dyspnoea [Unknown]
  - Dizziness [Unknown]
  - Back pain [Unknown]
  - Hypotension [Unknown]
  - Feeling abnormal [Unknown]
  - Chills [Unknown]
  - Pruritus [Unknown]
